FAERS Safety Report 9281847 (Version 1)
Quarter: 2013Q2

REPORT INFORMATION
  Report Type: Spontaneous
  Country: DE (occurrence: DE)
  Receive Date: 20130510
  Receipt Date: 20130510
  Transmission Date: 20140414
  Serious: Yes (Life-Threatening, Hospitalization, Other)
  Sender: FDA-Public Use
  Company Number: DE-ROCHE-1188405

PATIENT
  Age: 63 Year
  Sex: Female
  Weight: 75 kg

DRUGS (4)
  1. HERCEPTIN [Suspect]
     Indication: BREAST CANCER
     Route: 065
     Dates: start: 20120221, end: 20130119
  2. VERAPAMIL [Suspect]
     Indication: HYPERTENSION
     Route: 048
     Dates: end: 20130222
  3. BELOC-ZOK [Concomitant]
     Indication: CARDIAC FAILURE
     Route: 048
  4. BELOC-ZOK [Concomitant]
     Indication: HYPERTENSION

REACTIONS (3)
  - Atrial fibrillation [Recovered/Resolved]
  - Heart rate increased [Unknown]
  - Hypertension [Unknown]
